FAERS Safety Report 21461217 (Version 3)
Quarter: 2022Q4

REPORT INFORMATION
  Report Type: Report from Study
  Country: US (occurrence: US)
  Receive Date: 20221015
  Receipt Date: 20221228
  Transmission Date: 20230113
  Serious: No
  Sender: FDA-Public Use
  Company Number: US-ABBVIE-4142896

PATIENT
  Age: 20 Year
  Sex: Female

DRUGS (1)
  1. HUMIRA [Suspect]
     Active Substance: ADALIMUMAB
     Indication: Colitis ulcerative
     Route: 058
     Dates: start: 20211025

REACTIONS (11)
  - Colitis ulcerative [Recovered/Resolved]
  - Nasopharyngitis [Unknown]
  - Anxiety [Unknown]
  - Abdominal distension [Unknown]
  - Nausea [Recovered/Resolved]
  - Maternal exposure during pregnancy [Unknown]
  - Mucous stools [Unknown]
  - Flatulence [Unknown]
  - Vomiting [Unknown]
  - Abdominal discomfort [Unknown]
  - Eating disorder [Unknown]

NARRATIVE: CASE EVENT DATE: 20220901
